FAERS Safety Report 19450488 (Version 1)
Quarter: 2021Q2

REPORT INFORMATION
  Report Type: Report from Study
  Country: CO (occurrence: CO)
  Receive Date: 20210622
  Receipt Date: 20210622
  Transmission Date: 20210717
  Serious: Yes (Other)
  Sender: FDA-Public Use
  Company Number: CO-TAKEDA-2021TUS006255

PATIENT
  Sex: Male
  Weight: 91 kg

DRUGS (4)
  1. ICATIBANT [Suspect]
     Active Substance: ICATIBANT ACETATE
     Indication: HEREDITARY ANGIOEDEMA
     Dosage: 30 MILLIGRAM, DO NOT APPLY MORE THAN 3 SYRINGES IN LESS THAN 24 HOURS
     Route: 058
     Dates: start: 20170804
  2. ICATIBANT [Suspect]
     Active Substance: ICATIBANT ACETATE
     Indication: HEREDITARY ANGIOEDEMA
     Dosage: 30 MILLIGRAM, DO NOT APPLY MORE THAN 3 SYRINGES IN LESS THAN 24 HOURS
     Route: 058
     Dates: start: 20170804
  3. ICATIBANT [Suspect]
     Active Substance: ICATIBANT ACETATE
     Dosage: 30MILLIGRAM, EVERY 6 HOURS MAXIMUM 3 IN 24 HOURS
     Route: 058
     Dates: start: 20170804
  4. ICATIBANT [Suspect]
     Active Substance: ICATIBANT ACETATE
     Dosage: 30MILLIGRAM, EVERY 6 HOURS MAXIMUM 3 IN 24 HOURS
     Route: 058
     Dates: start: 20170804

REACTIONS (1)
  - COVID-19 [Recovering/Resolving]
